FAERS Safety Report 21028337 (Version 2)
Quarter: 2022Q3

REPORT INFORMATION
  Report Type: Report from Study
  Country: US (occurrence: US)
  Receive Date: 20220630
  Receipt Date: 20220719
  Transmission Date: 20221026
  Serious: Yes (Hospitalization, Other)
  Sender: FDA-Public Use
  Company Number: US-PPDUS-2022ZX000753

PATIENT
  Age: 2 Year
  Sex: Male

DRUGS (1)
  1. FINTEPLA [Suspect]
     Active Substance: FENFLURAMINE
     Indication: Severe myoclonic epilepsy of infancy
     Route: 048

REACTIONS (3)
  - Oxygen saturation decreased [Unknown]
  - Intensive care [Unknown]
  - Seizure [Unknown]

NARRATIVE: CASE EVENT DATE: 20220601
